FAERS Safety Report 16724910 (Version 1)
Quarter: 2019Q3

REPORT INFORMATION
  Report Type: Spontaneous
  Country: US (occurrence: US)
  Receive Date: 20190821
  Receipt Date: 20190821
  Transmission Date: 20191005
  Serious: No
  Sender: FDA-Public Use
  Company Number: US-GILEAD-2019-0424381

PATIENT
  Age: 72 Year
  Sex: Female

DRUGS (2)
  1. SOVALDI [Suspect]
     Active Substance: SOFOSBUVIR
     Indication: CHRONIC HEPATITIS C
     Dosage: UNK
     Route: 065
     Dates: start: 2015
  2. PROPOFOL. [Concomitant]
     Active Substance: PROPOFOL

REACTIONS (5)
  - Feeling abnormal [Recovered/Resolved]
  - Memory impairment [Unknown]
  - Hypersensitivity [Unknown]
  - Large intestine polyp [Recovered/Resolved]
  - Tremor [Recovered/Resolved]
